FAERS Safety Report 8318141-5 (Version None)
Quarter: 2012Q2

REPORT INFORMATION
  Report Type: 
  Country: None (occurrence: None)
  Receive Date: 20120427
  Receipt Date: 20120423
  Transmission Date: 20120825
  Serious: Yes (Death)
  Sender: FDA-Public Use
  Company Number: ES-PFIZER INC-2012100418

PATIENT
  Age: 67 Year
  Sex: Male

DRUGS (6)
  1. ITRACONAZOLE [Suspect]
     Indication: PROPHYLAXIS
     Dosage: 200 MG, 2X/DAY
     Route: 042
     Dates: start: 20111128, end: 20111215
  2. AMIKACIN [Suspect]
     Indication: RESPIRATORY TRACT INFECTION
     Dosage: 1 G, 1X/DAY
     Route: 042
     Dates: start: 20111202, end: 20111223
  3. TAZOBACTAM [Suspect]
     Indication: RESPIRATORY TRACT INFECTION
     Dosage: 4 G/ 0.5 G
     Route: 042
     Dates: start: 20111126, end: 20111215
  4. CEFTRIAXONE [Suspect]
     Indication: RESPIRATORY TRACT INFECTION
     Dosage: 2 G, 1X/DAY
     Route: 042
     Dates: start: 20111128, end: 20111130
  5. ACYCLOVIR [Suspect]
     Indication: PROPHYLAXIS
     Dosage: 800 MG, 2X/DAY
     Route: 048
     Dates: start: 20111128, end: 20111205
  6. AZACITIDINE [Suspect]
     Indication: MYELODYSPLASTIC SYNDROME
     Dosage: 70 MG, 2X/DAY
     Route: 058
     Dates: start: 20111114, end: 20111116

REACTIONS (1)
  - JAUNDICE [None]
